FAERS Safety Report 12705031 (Version 1)
Quarter: 2016Q3

REPORT INFORMATION
  Report Type: Spontaneous
  Country: US (occurrence: None)
  Receive Date: 20160831
  Receipt Date: 20160831
  Transmission Date: 20161109
  Serious: Yes (Disabling)
  Sender: FDA-Public Use
  Company Number: None

PATIENT
  Age: 39 Year
  Sex: Female
  Weight: 68.95 kg

DRUGS (10)
  1. EFFEXOR XR [Suspect]
     Active Substance: VENLAFAXINE HYDROCHLORIDE
     Indication: MAJOR DEPRESSION
     Route: 048
  2. ALTENOLOL [Concomitant]
  3. RIBOFLAVIN [Concomitant]
     Active Substance: RIBOFLAVIN
  4. TOPAMAX [Concomitant]
     Active Substance: TOPIRAMATE
  5. NORITHEDRONE [Concomitant]
  6. PROZAC [Concomitant]
     Active Substance: FLUOXETINE HYDROCHLORIDE
  7. SEROQUEL [Concomitant]
     Active Substance: QUETIAPINE FUMARATE
  8. GABAPENTIN. [Concomitant]
     Active Substance: GABAPENTIN
  9. MAGNESIUM [Concomitant]
     Active Substance: MAGNESIUM
  10. EFFEXOR XR [Suspect]
     Active Substance: VENLAFAXINE HYDROCHLORIDE

REACTIONS (3)
  - Withdrawal syndrome [None]
  - Nausea [None]
  - Migraine with aura [None]

NARRATIVE: CASE EVENT DATE: 20160828
